FAERS Safety Report 9693365 (Version 1)
Quarter: 2013Q4

REPORT INFORMATION
  Report Type: Spontaneous
  Country: US (occurrence: None)
  Receive Date: 20131114
  Receipt Date: 20131114
  Transmission Date: 20140711
  Serious: Yes (Hospitalization)
  Sender: FDA-Public Use
  Company Number: 2013-US-000036

PATIENT
  Age: 21 Year
  Sex: Female

DRUGS (2)
  1. DOXYCYCLINE [Suspect]
  2. CELEXA (CITALOPRAM) [Concomitant]

REACTIONS (1)
  - Pancreatitis acute [None]
